FAERS Safety Report 7329408-1 (Version None)
Quarter: 2011Q1

REPORT INFORMATION
  Report Type: 
  Country: None (occurrence: None)
  Receive Date: 20110220
  Receipt Date: 20110220
  Transmission Date: 20110831
  Serious: No
  Sender: FDA-Public Use
  Company Number: None

PATIENT
  Age: 32 Year
  Sex: Male
  Weight: 74.8435 kg

DRUGS (1)
  1. HUMIRA [Suspect]
     Indication: PSORIASIS
     Dosage: 40MG EVERY OTHER WEEK CUTANEOUS
     Route: 003
     Dates: start: 20090918, end: 20100515

REACTIONS (2)
  - DERMATITIS PSORIASIFORM [None]
  - PRODUCT LABEL ISSUE [None]
